FAERS Safety Report 5725540-4 (Version None)
Quarter: 2008Q2

REPORT INFORMATION
  Report Type: 
  Country: None (occurrence: None)
  Receive Date: 20080501
  Receipt Date: 20080425
  Transmission Date: 20081010
  Serious: Yes (Other)
  Sender: FDA-Public Use
  Company Number: JP-ASTRAZENECA-2008AP03150

PATIENT
  Age: 76 Year
  Sex: Female

DRUGS (4)
  1. TENORMIN [Suspect]
     Indication: HYPERTENSION
     Route: 048
     Dates: start: 20080417, end: 20080420
  2. NORVASC [Concomitant]
     Route: 048
     Dates: start: 20070116
  3. PIMENOL [Concomitant]
     Route: 048
     Dates: start: 20070116
  4. BUFFERIN [Concomitant]
     Route: 048
     Dates: start: 20070116

REACTIONS (2)
  - HEPATIC FUNCTION ABNORMAL [None]
  - OEDEMA PERIPHERAL [None]
